FAERS Safety Report 16703972 (Version 3)
Quarter: 2019Q3

REPORT INFORMATION
  Report Type: Spontaneous
  Country: CA (occurrence: CA)
  Receive Date: 20190814
  Receipt Date: 20190925
  Transmission Date: 20191004
  Serious: Yes (Death, Hospitalization)
  Sender: FDA-Public Use
  Company Number: CA-VERTEX PHARMACEUTICALS-2019-007552

PATIENT
  Age: 14 Year
  Sex: Female
  Weight: 36 kg

DRUGS (13)
  1. MORPHINE [Concomitant]
     Active Substance: MORPHINE
  2. BENADRYL [Concomitant]
     Active Substance: DIPHENHYDRAMINE HYDROCHLORIDE
  3. PIPERACILLIN AND TAZOBACTAM [Concomitant]
     Active Substance: PIPERACILLIN SODIUM\TAZOBACTAM SODIUM
  4. CIPRALEX [Concomitant]
     Active Substance: ESCITALOPRAM OXALATE
     Dosage: DOSE INCREASED
     Dates: start: 2019
  5. QUINSAIR [Concomitant]
  6. HYPERTONIC SALINE SOLUTION [Concomitant]
     Active Substance: SODIUM CHLORIDE
  7. CAYSTON [Concomitant]
     Active Substance: AZTREONAM
     Route: 055
  8. PULMOZYME [Concomitant]
     Active Substance: DORNASE ALFA
  9. LORAZEPAM. [Concomitant]
     Active Substance: LORAZEPAM
     Dosage: .5 MG, QID (PRN)
  10. GRAVOL [Concomitant]
     Active Substance: DIMENHYDRINATE
  11. CIPRALEX [Concomitant]
     Active Substance: ESCITALOPRAM OXALATE
     Indication: ANXIETY
     Dosage: UNK
     Dates: start: 201803
  12. ORKAMBI [Suspect]
     Active Substance: IVACAFTOR\LUMACAFTOR
     Indication: CYSTIC FIBROSIS
     Dosage: STANDARD
     Route: 048
     Dates: start: 201803, end: 20190831
  13. ONDANSETRON [Concomitant]
     Active Substance: ONDANSETRON

REACTIONS (5)
  - Depression [Not Recovered/Not Resolved]
  - Acute respiratory failure [Unknown]
  - Weight decreased [Recovered/Resolved]
  - Anxiety [Not Recovered/Not Resolved]
  - Death [Fatal]

NARRATIVE: CASE EVENT DATE: 201803
